FAERS Safety Report 22080870 (Version 4)
Quarter: 2023Q2

REPORT INFORMATION
  Report Type: Spontaneous
  Country: ES (occurrence: ES)
  Receive Date: 20230309
  Receipt Date: 20230505
  Transmission Date: 20230721
  Serious: Yes (Disabling)
  Sender: FDA-Public Use
  Company Number: ES-TEVA-2023-ES-2862834

PATIENT
  Age: 58 Year
  Sex: Female

DRUGS (3)
  1. ACTIQ [Suspect]
     Active Substance: FENTANYL CITRATE
     Indication: Fibromyalgia
     Dosage: STARTED 3-4 YEARS AGO
     Route: 002
  2. ACTIQ [Suspect]
     Active Substance: FENTANYL CITRATE
     Indication: Oral pain
     Dosage: STARTED 3-4 YEARS AGO
     Route: 002
  3. ACTIQ [Suspect]
     Active Substance: FENTANYL CITRATE
     Dosage: STARTED 3-4 YEARS AGO
     Route: 002

REACTIONS (18)
  - Pain [Not Recovered/Not Resolved]
  - Speech disorder [Not Recovered/Not Resolved]
  - Stomatitis [Not Recovered/Not Resolved]
  - Administration site injury [Not Recovered/Not Resolved]
  - Administration site pain [Unknown]
  - Helplessness [Unknown]
  - Bedridden [Unknown]
  - Discomfort [Unknown]
  - Feeling abnormal [Unknown]
  - Product administration error [Unknown]
  - Product prescribing error [Unknown]
  - Poor quality product administered [Unknown]
  - Intentional product use issue [Unknown]
  - Product use complaint [Unknown]
  - Product solubility abnormal [Unknown]
  - Product physical issue [Unknown]
  - Product quality issue [Unknown]
  - Product taste abnormal [Unknown]
